FAERS Safety Report 5367297-5 (Version None)
Quarter: 2007Q2

REPORT INFORMATION
  Report Type: 
  Country: None (occurrence: None)
  Receive Date: 20070622
  Receipt Date: 20060509
  Transmission Date: 20071010
  Serious: No
  Sender: FDA-Public Use
  Company Number: US-ASTRAZENECA-2006UW09078

PATIENT
  Age: 42 Year
  Sex: Female

DRUGS (3)
  1. PULMICORT [Suspect]
     Indication: ASTHMA
     Route: 055
  2. THEOPHYLLINE [Concomitant]
  3. MAXAIR [Concomitant]

REACTIONS (2)
  - DYSPNOEA [None]
  - POOR QUALITY SLEEP [None]
